FAERS Safety Report 14753131 (Version 1)
Quarter: 2018Q2

REPORT INFORMATION
  Report Type: Spontaneous
  Country: US (occurrence: US)
  Receive Date: 20180412
  Receipt Date: 20180412
  Transmission Date: 20180711
  Serious: No
  Sender: FDA-Public Use
  Company Number: US-TEVA-2018-US-871986

PATIENT
  Sex: Male

DRUGS (1)
  1. CLONAZEPAM. [Suspect]
     Active Substance: CLONAZEPAM
     Route: 065

REACTIONS (8)
  - Balance disorder [Unknown]
  - Feeling abnormal [Unknown]
  - Cognitive disorder [Unknown]
  - Hypoacusis [Unknown]
  - Memory impairment [Unknown]
  - Dysstasia [Unknown]
  - Impaired driving ability [Unknown]
  - Dizziness [Unknown]
